FAERS Safety Report 6202297-4 (Version None)
Quarter: 2009Q2

REPORT INFORMATION
  Report Type: 
  Country: None (occurrence: None)
  Receive Date: 20090526
  Receipt Date: 20090514
  Transmission Date: 20091009
  Serious: No
  Sender: FDA-Public Use
  Company Number: US-B.I. PHARMACEUTICALS,INC./RIDGEFIELD-2009-BP-06078BP

PATIENT
  Age: 86 Year
  Sex: Female

DRUGS (3)
  1. ZANTAC 75 [Suspect]
     Indication: DYSGEUSIA
     Dosage: 150MG
     Route: 048
     Dates: start: 20090501
  2. SYNTHROID [Concomitant]
     Indication: THYROID DISORDER
  3. PAXIL [Concomitant]
     Indication: ANXIETY

REACTIONS (1)
  - DYSGEUSIA [None]
